FAERS Safety Report 22028874 (Version 1)
Quarter: 2023Q1

REPORT INFORMATION
  Report Type: Spontaneous
  Country: US (occurrence: None)
  Receive Date: 20230221
  Receipt Date: 20230221
  Transmission Date: 20230418
  Serious: No
  Sender: FDA-Public Use
  Company Number: None

PATIENT
  Age: 62 Year
  Sex: Male
  Weight: 73.8 kg

DRUGS (1)
  1. VERQUVO [Suspect]
     Active Substance: VERICIGUAT
     Indication: Cardiac failure
     Dosage: OTHER QUANTITY : 1 TABLET(S);?
     Route: 048
     Dates: start: 20230220, end: 20230221

REACTIONS (3)
  - Gastrooesophageal reflux disease [None]
  - Similar reaction on previous exposure to drug [None]
  - Oropharyngeal pain [None]

NARRATIVE: CASE EVENT DATE: 20230221
